FAERS Safety Report 25733491 (Version 2)
Quarter: 2025Q4

REPORT INFORMATION
  Report Type: Spontaneous
  Country: US (occurrence: US)
  Receive Date: 20250828
  Receipt Date: 20251209
  Transmission Date: 20260118
  Serious: Yes (Other)
  Sender: COOPERSURGICAL
  Company Number: US-COOPERSURGICAL, INC.-2025CPS006158

PATIENT
  Age: 46 Year
  Sex: Female
  Weight: 89.342 kg

DRUGS (1)
  1. PARAGARD T 380A [Suspect]
     Active Substance: COPPER
     Indication: Contraception
     Dosage: UNK
     Route: 015
     Dates: start: 20140131, end: 20250129

REACTIONS (12)
  - Hysterectomy [Recovered/Resolved]
  - Injury [Unknown]
  - Reproductive complication associated with device [Unknown]
  - Device breakage [Recovered/Resolved]
  - Foreign body in reproductive tract [Recovered/Resolved]
  - Complication of device removal [Recovered/Resolved]
  - Uterine perforation [Recovered/Resolved]
  - Emotional distress [Unknown]
  - Scar [Not Recovered/Not Resolved]
  - Pain [Recovered/Resolved]
  - Intentional device use issue [Recovered/Resolved]
  - Off label use [Unknown]

NARRATIVE: CASE EVENT DATE: 20240901
